FAERS Safety Report 4415175-8 (Version None)
Quarter: 2004Q3

REPORT INFORMATION
  Report Type: 
  Country: None (occurrence: None)
  Receive Date: 20040804
  Receipt Date: 20040714
  Transmission Date: 20050211
  Serious: Yes (Death, Hospitalization)
  Sender: FDA-Public Use
  Company Number: PH-BRISTOL-MYERS SQUIBB COMPANY-12645362

PATIENT
  Age: 47 Year
  Sex: Female
  Weight: 58 kg

DRUGS (6)
  1. HOLOXAN [Suspect]
     Indication: CERVIX CARCINOMA
     Dosage: LOT #S 4A122F + 4A108B
     Route: 042
     Dates: start: 20040702, end: 20040702
  2. UROMITEXAN [Suspect]
     Indication: PROPHYLAXIS
     Route: 042
     Dates: start: 20040702, end: 20040702
  3. CISPLATIN [Suspect]
     Indication: CERVIX CARCINOMA
     Route: 042
     Dates: start: 20040702, end: 20040702
  4. DEXAMETHASONE [Concomitant]
     Indication: PREMEDICATION
     Dates: start: 20040702, end: 20040702
  5. RAMOSETRON [Concomitant]
     Indication: PREMEDICATION
     Dates: start: 20040702, end: 20040702
  6. METOCLOPRAMIDE [Concomitant]
     Dates: start: 20040704, end: 20040704

REACTIONS (4)
  - FEBRILE NEUTROPENIA [None]
  - MULTI-ORGAN FAILURE [None]
  - SEPSIS [None]
  - URINARY TRACT INFECTION [None]
